FAERS Safety Report 7140963-7 (Version None)
Quarter: 2010Q4

REPORT INFORMATION
  Report Type: 
  Country: None (occurrence: None)
  Receive Date: 20101201
  Receipt Date: 20101201
  Transmission Date: 20110411
  Serious: No
  Sender: FDA-Public Use
  Company Number: None

PATIENT

DRUGS (1)
  1. ROBITUSSIN DM [Suspect]
     Dosage: COUGH MEDICINE, 4 OUNCE LIQUID

REACTIONS (5)
  - NAUSEA [None]
  - PRODUCT ODOUR ABNORMAL [None]
  - PRODUCT QUALITY ISSUE [None]
  - RETCHING [None]
  - VOMITING [None]
